FAERS Safety Report 20072280 (Version 1)
Quarter: 2021Q4

REPORT INFORMATION
  Report Type: Spontaneous
  Country: US (occurrence: US)
  Receive Date: 20211116
  Receipt Date: 20211116
  Transmission Date: 20220303
  Serious: Yes (Hospitalization, Other)
  Sender: FDA-Public Use
  Company Number: US-JNJFOC-20211115979

PATIENT
  Age: 6 Decade
  Sex: Female

DRUGS (1)
  1. NEUTROGENA BEACH DEF WATER PLUS SUN PROTECT BR?D SPECT SPF 70 (AV\HOM\ [Suspect]
     Active Substance: AVOBENZONE\HOMOSALATE\OCTISALATE\OCTOCRYLENE
     Indication: Prophylaxis against solar radiation
     Dosage: COVER WHOLE BODY WITH IT, 3 OR 4 TIMES A WEEK USED FOR YEARS
     Route: 061

REACTIONS (1)
  - Skin cancer [Not Recovered/Not Resolved]
